FAERS Safety Report 10210713 (Version 1)
Quarter: 2014Q2

REPORT INFORMATION
  Report Type: Report from Study
  Country: DE (occurrence: DE)
  Receive Date: 20140602
  Receipt Date: 20140602
  Transmission Date: 20141212
  Serious: Yes (Hospitalization)
  Sender: FDA-Public Use
  Company Number: PHHY2014DE064343

PATIENT
  Sex: Male
  Weight: 85 kg

DRUGS (6)
  1. FTY 720 [Suspect]
     Indication: MULTIPLE SCLEROSIS
     Dosage: 0.5 MG, QD
     Route: 048
     Dates: start: 20130708
  2. MIRTAZAPINE [Suspect]
  3. VIGANTOLETTEN [Concomitant]
     Indication: VITAMIN D DEFICIENCY
     Dosage: 1 DF, UNK
     Route: 048
     Dates: start: 20120413
  4. IBUPROFEN [Concomitant]
     Indication: HEADACHE
     Dosage: 600 MG, PRN
     Route: 048
     Dates: start: 20110418
  5. LEVETIRACETAM [Concomitant]
     Dosage: 1000 MG, QD
     Dates: start: 20130805
  6. SILDENAFIL [Concomitant]
     Indication: ERECTILE DYSFUNCTION
     Dosage: 50 MG, PRN
     Route: 048
     Dates: start: 20140109

REACTIONS (2)
  - Toxicity to various agents [Recovered/Resolved]
  - Suicidal ideation [Recovered/Resolved]
